FAERS Safety Report 4864952-8 (Version None)
Quarter: 2005Q4

REPORT INFORMATION
  Report Type: 
  Country: None (occurrence: None)
  Receive Date: 20051219
  Receipt Date: 20051130
  Transmission Date: 20060501
  Serious: Yes (Hospitalization)
  Sender: FDA-Public Use
  Company Number: 032-62

PATIENT
  Age: 88 Year
  Sex: Female

DRUGS (3)
  1. TEVETEN [Suspect]
  2. TRIMETHOPRIM [Concomitant]
  3. NOZINAN [Concomitant]

REACTIONS (4)
  - DEMENTIA [None]
  - DIZZINESS [None]
  - HYPONATRAEMIA [None]
  - MEMORY IMPAIRMENT [None]
